FAERS Safety Report 25284580 (Version 1)
Quarter: 2025Q2

REPORT INFORMATION
  Report Type: Spontaneous
  Country: ES (occurrence: ES)
  Receive Date: 20250508
  Receipt Date: 20250508
  Transmission Date: 20250717
  Serious: Yes (Other)
  Sender: PFIZER
  Company Number: None

PATIENT
  Age: 72 Year
  Sex: Female
  Weight: 87.8 kg

DRUGS (5)
  1. IRINOTECAN HYDROCHLORIDE [Suspect]
     Active Substance: IRINOTECAN HYDROCHLORIDE
     Indication: Ductal adenocarcinoma of pancreas
     Dosage: 292 MG, EVERY 3 WEEKS
     Route: 042
     Dates: start: 20240924
  2. OXALIPLATIN [Concomitant]
     Active Substance: OXALIPLATIN
     Indication: Ductal adenocarcinoma of pancreas
     Dosage: 138 MG, EVERY 3 WEEKS
     Route: 042
     Dates: start: 20240924
  3. OXALIPLATIN [Concomitant]
     Active Substance: OXALIPLATIN
     Dosage: 138 MG, EVERY 3 WEEKS
     Route: 042
     Dates: start: 20240924
  4. OXALIPLATIN [Concomitant]
     Active Substance: OXALIPLATIN
     Dosage: 138 MG, EVERY 3 WEEKS
     Route: 042
     Dates: start: 20240924
  5. FLUOROURACIL [Concomitant]
     Active Substance: FLUOROURACIL
     Indication: Ductal adenocarcinoma of pancreas
     Dosage: 3888 MG, EVERY 3 WEEKS
     Route: 042
     Dates: start: 20240924

REACTIONS (2)
  - Cholinergic syndrome [Recovered/Resolved]
  - Off label use [Unknown]

NARRATIVE: CASE EVENT DATE: 20240924
